FAERS Safety Report 24882466 (Version 1)
Quarter: 2025Q1

REPORT INFORMATION
  Report Type: Spontaneous
  Country: IN (occurrence: IN)
  Receive Date: 20250124
  Receipt Date: 20250124
  Transmission Date: 20250408
  Serious: Yes (Other)
  Sender: ACCORD
  Company Number: IN-MLMSERVICE-20250107-PI340429-00306-3

PATIENT
  Age: 28 Year
  Sex: Male

DRUGS (5)
  1. TACROLIMUS [Suspect]
     Active Substance: TACROLIMUS
     Indication: Immunosuppressant drug therapy
     Dates: start: 2014
  2. EVEROLIMUS [Concomitant]
     Active Substance: EVEROLIMUS
     Indication: Immunosuppressant drug therapy
     Dates: start: 202201
  3. PREDNISOLONE [Concomitant]
     Active Substance: PREDNISOLONE
     Indication: Immunosuppressant drug therapy
     Dates: start: 2014
  4. PREDNISOLONE [Concomitant]
     Active Substance: PREDNISOLONE
     Indication: Immunosuppressant drug therapy
     Dates: start: 202112
  5. TACROLIMUS [Suspect]
     Active Substance: TACROLIMUS
     Indication: Immunosuppressant drug therapy
     Dates: start: 202112, end: 2023

REACTIONS (2)
  - Thrombotic microangiopathy [Unknown]
  - Chronic allograft nephropathy [Unknown]

NARRATIVE: CASE EVENT DATE: 20220101
